FAERS Safety Report 4422884-3 (Version None)
Quarter: 2004Q3

REPORT INFORMATION
  Report Type: 
  Country: None (occurrence: None)
  Receive Date: 20040811
  Receipt Date: 20040730
  Transmission Date: 20050211
  Serious: Yes (Other)
  Sender: FDA-Public Use
  Company Number: US-JNJFOC-20040501383

PATIENT
  Sex: Female
  Weight: 96.16 kg

DRUGS (5)
  1. REMICADE [Suspect]
     Indication: RHEUMATOID ARTHRITIS
     Route: 042
  2. LEFLUNOMIDE [Concomitant]
  3. METHOTREXATE [Concomitant]
  4. VIOXX [Concomitant]
  5. PREDNISONE [Concomitant]

REACTIONS (1)
  - B-CELL LYMPHOMA STAGE II [None]
